FAERS Safety Report 12713059 (Version 1)
Quarter: 2016Q3

REPORT INFORMATION
  Report Type: Spontaneous
  Country: US (occurrence: US)
  Receive Date: 20160902
  Receipt Date: 20160902
  Transmission Date: 20161109
  Serious: Yes (Death)
  Sender: FDA-Public Use
  Company Number: US-RELYPSA-RLY2016002243

PATIENT
  Age: 75 Year
  Sex: Male

DRUGS (23)
  1. MORPHINE SULFATE. [Concomitant]
     Active Substance: MORPHINE SULFATE
  2. PROCHLORPERAZINE MALEATE. [Concomitant]
     Active Substance: PROCHLORPERAZINE MALEATE
  3. MIRALAX [Concomitant]
     Active Substance: POLYETHYLENE GLYCOL 3350
  4. DIPHENHYDRAMINE HCL [Concomitant]
     Active Substance: DIPHENHYDRAMINE HYDROCHLORIDE
  5. DEXAMETHASONE SODIUM PHOSPHATE. [Concomitant]
     Active Substance: DEXAMETHASONE SODIUM PHOSPHATE
  6. TORISEL [Concomitant]
     Active Substance: TEMSIROLIMUS
  7. AFINITOR [Concomitant]
     Active Substance: EVEROLIMUS
     Dosage: 5 MG, 1X28
  8. VITAMIN D                          /00107901/ [Concomitant]
     Active Substance: ERGOCALCIFEROL
  9. VELTASSA [Suspect]
     Active Substance: PATIROMER
     Indication: HYPERKALAEMIA
     Dosage: 8.4 G, QD
     Route: 048
  10. XARELTO [Concomitant]
     Active Substance: RIVAROXABAN
  11. AZITHROMYCIN ANHYDROUS. [Concomitant]
     Active Substance: AZITHROMYCIN ANHYDROUS
  12. B COMPLEX                          /00322001/ [Concomitant]
     Active Substance: CALCIUM PANTOTHENATE\CYANOCOBALAMIN\NIACINAMIDE\PYRIDOXINE HYDROCHLORIDE\RIBOFLAVIN\THIAMINE HYDROCHLORIDE
  13. COENZYME Q10 [Concomitant]
     Active Substance: UBIDECARENONE
  14. LABETALOL HCL [Concomitant]
     Active Substance: LABETALOL HYDROCHLORIDE
  15. PEPCID                             /00305201/ [Concomitant]
     Active Substance: ALUMINUM HYDROXIDE\MAGNESIUM CARBONATE
  16. METHYLPREDNISOLONE. [Concomitant]
     Active Substance: METHYLPREDNISOLONE
  17. VITAMIN C [Concomitant]
     Active Substance: ASCORBIC ACID
  18. ZINC [Concomitant]
     Active Substance: ZINC\ZINC CHLORIDE
  19. LOSARTAN POTASSIUM. [Concomitant]
     Active Substance: LOSARTAN POTASSIUM
  20. FINASTERIDE. [Concomitant]
     Active Substance: FINASTERIDE
  21. OXYCODONE HYDROCHLORIDE. [Concomitant]
     Active Substance: OXYCODONE HYDROCHLORIDE
  22. MILK OF MAGNESIA [Concomitant]
     Active Substance: MAGNESIUM HYDROXIDE
  23. COLACE [Concomitant]
     Active Substance: DOCUSATE SODIUM

REACTIONS (1)
  - Death [Fatal]

NARRATIVE: CASE EVENT DATE: 20160824
